FAERS Safety Report 7270066-2 (Version None)
Quarter: 2011Q1

REPORT INFORMATION
  Report Type: 
  Country: None (occurrence: None)
  Receive Date: 20110125
  Receipt Date: 20110114
  Transmission Date: 20110831
  Serious: Yes (Other)
  Sender: FDA-Public Use
  Company Number: 806305

PATIENT
  Age: 61 Year
  Sex: Female
  Weight: 82 kg

DRUGS (5)
  1. OMEPRAZOLE [Concomitant]
  2. FLOXACILLIN SODIUM [Suspect]
     Indication: INDUCTION OF ANAESTHESIA
     Dosage: 1 G GRAM(S), INTRAVENOUS (NOT OTHERWISE SPECIFIED)
     Route: 042
     Dates: start: 20101219, end: 20101219
  3. RAMIPRIL [Concomitant]
  4. GENTAMICIN SULFATE [Suspect]
     Indication: INDUCTION OF ANAESTHESIA
     Dosage: 120 MG MILLIGRAM(S), INTRAVENOUS (NOT OTHERWISE SPECIFIED)
     Route: 042
     Dates: start: 20101219, end: 20101219
  5. ACETAMINOPHEN [Concomitant]

REACTIONS (6)
  - VOMITING [None]
  - FLUSHING [None]
  - HYPOTENSION [None]
  - BACK PAIN [None]
  - RASH PRURITIC [None]
  - ABDOMINAL PAIN UPPER [None]
